FAERS Safety Report 14237274 (Version 6)
Quarter: 2018Q1

REPORT INFORMATION
  Report Type: Spontaneous
  Country: CA (occurrence: CA)
  Receive Date: 20171129
  Receipt Date: 20180321
  Transmission Date: 20180508
  Serious: Yes (Death)
  Sender: FDA-Public Use
  Company Number: CA-BEH-2017085451

PATIENT
  Age: 81 Year
  Sex: Male

DRUGS (6)
  1. ALBUREX [Suspect]
     Active Substance: ALBUMIN HUMAN
     Indication: SHOCK
     Dosage: 80 ML, UNK
     Route: 065
     Dates: start: 20171117, end: 20171117
  2. ALBUREX [Suspect]
     Active Substance: ALBUMIN HUMAN
     Indication: HYPOVOLAEMIA
  3. LASIX [Concomitant]
     Active Substance: FUROSEMIDE
     Dosage: 40 MG, UNK
     Route: 042
     Dates: start: 20171117
  4. ALBUREX [Suspect]
     Active Substance: ALBUMIN HUMAN
     Indication: HYPOTENSION
     Dosage: 100 ML, SINGLE
     Route: 042
     Dates: start: 20171117, end: 20171117
  5. ALBUREX [Suspect]
     Active Substance: ALBUMIN HUMAN
     Indication: OXYGEN SATURATION DECREASED
  6. ALBUREX [Suspect]
     Active Substance: ALBUMIN HUMAN
     Indication: OLIGURIA

REACTIONS (2)
  - Chills [Unknown]
  - Cardiogenic shock [Fatal]

NARRATIVE: CASE EVENT DATE: 20171117
